FAERS Safety Report 8198497-7 (Version None)
Quarter: 2012Q1

REPORT INFORMATION
  Report Type: 
  Country: None (occurrence: None)
  Receive Date: 20120309
  Receipt Date: 20120305
  Transmission Date: 20120608
  Serious: Yes (Other)
  Sender: FDA-Public Use
  Company Number: PHHY2012MX020262

PATIENT
  Sex: Female

DRUGS (3)
  1. EXFORGE HCT [Suspect]
     Indication: HYPERTENSION
     Dosage: 1 DF X (320/10/25 MG), DAILY
     Dates: start: 20120101
  2. LANTUS [Concomitant]
     Indication: DIABETES MELLITUS
     Dosage: 25 IU, QD
     Route: 058
  3. LORAXADIN [Concomitant]
     Indication: BLOOD TRIGLYCERIDES
     Dosage: UNK

REACTIONS (11)
  - SPEECH DISORDER [None]
  - FEELING ABNORMAL [None]
  - TRISMUS [None]
  - PARALYSIS [None]
  - ABDOMINAL DISCOMFORT [None]
  - MUSCULAR WEAKNESS [None]
  - BLOOD GLUCOSE INCREASED [None]
  - OROPHARYNGEAL PAIN [None]
  - HYPERTENSION [None]
  - BACTERIAL TEST POSITIVE [None]
  - FATIGUE [None]
